FAERS Safety Report 17032542 (Version 2)
Quarter: 2019Q4

REPORT INFORMATION
  Report Type: Report from Study
  Country: GB (occurrence: GB)
  Receive Date: 20191114
  Receipt Date: 20191210
  Transmission Date: 20200122
  Serious: Yes (Other)
  Sender: FDA-Public Use
  Company Number: PHHY2015GB027497

PATIENT
  Age: 28 Year
  Sex: Female

DRUGS (1)
  1. GILENYA [Suspect]
     Active Substance: FINGOLIMOD HYDROCHLORIDE
     Indication: MULTIPLE SCLEROSIS
     Dosage: UNK, QD
     Route: 048
     Dates: start: 20140703

REACTIONS (11)
  - Lymphocyte count decreased [Unknown]
  - Fatigue [Unknown]
  - Sensory disturbance [Unknown]
  - Hypoaesthesia [Recovered/Resolved]
  - Monocyte count decreased [Unknown]
  - Alanine aminotransferase increased [Unknown]
  - White blood cell count decreased [Unknown]
  - Arthralgia [Recovered/Resolved]
  - Epistaxis [Recovered/Resolved]
  - Pain in extremity [Recovered/Resolved]
  - Muscle spasms [Unknown]

NARRATIVE: CASE EVENT DATE: 20140724
